FAERS Safety Report 6664248-8 (Version None)
Quarter: 2010Q2

REPORT INFORMATION
  Report Type: 
  Country: None (occurrence: None)
  Receive Date: 20100401
  Receipt Date: 20100322
  Transmission Date: 20101027
  Serious: Yes (Other)
  Sender: FDA-Public Use
  Company Number: PHHY2010AR17603

PATIENT
  Sex: Female

DRUGS (1)
  1. RASILEZ D [Suspect]
     Indication: HYPERTENSION
     Dosage: 1TABLET DAILY
     Dates: start: 20100301

REACTIONS (3)
  - EYE SWELLING [None]
  - VISION BLURRED [None]
  - VISUAL IMPAIRMENT [None]
